FAERS Safety Report 7779700-1 (Version None)
Quarter: 2011Q3

REPORT INFORMATION
  Report Type: 
  Country: None (occurrence: None)
  Receive Date: 20110927
  Receipt Date: 20110922
  Transmission Date: 20111222
  Serious: Yes (Other)
  Sender: FDA-Public Use
  Company Number: US-PFIZER INC-2011226122

PATIENT
  Sex: Male
  Weight: 97.506 kg

DRUGS (6)
  1. MONOPRIL [Concomitant]
     Dosage: UNK
  2. ZOCOR [Concomitant]
     Dosage: UNK
  3. VIAGRA [Suspect]
     Indication: ERECTILE DYSFUNCTION
     Dosage: 100 MG, AS NEEDED
     Route: 048
     Dates: start: 20010101
  4. NEXIUM [Concomitant]
     Dosage: UNK
  5. ACETYLSALICYLIC ACID [Concomitant]
     Dosage: 81 MG, UNK
  6. CORGARD [Concomitant]
     Dosage: 40 MG, UNK

REACTIONS (2)
  - GLYCOSYLATED HAEMOGLOBIN INCREASED [None]
  - DRUG INEFFECTIVE [None]
